FAERS Safety Report 8541965-6 (Version None)
Quarter: 2012Q3

REPORT INFORMATION
  Report Type: 
  Country: None (occurrence: None)
  Receive Date: 20120726
  Receipt Date: 20111128
  Transmission Date: 20120928
  Serious: No
  Sender: FDA-Public Use
  Company Number: US-ASTRAZENECA-2011SE59689

PATIENT
  Age: 49 Year
  Sex: Female
  Weight: 74.8 kg

DRUGS (1)
  1. SEROQUEL [Suspect]
     Indication: BIPOLAR DISORDER
     Route: 048
     Dates: start: 20060101

REACTIONS (7)
  - DEPRESSION [None]
  - DRUG DOSE OMISSION [None]
  - TACHYPHRENIA [None]
  - PANIC REACTION [None]
  - ANGER [None]
  - EMOTIONAL DISORDER [None]
  - DRUG INEFFECTIVE [None]
